FAERS Safety Report 8093714-6 (Version None)
Quarter: 2012Q1

REPORT INFORMATION
  Report Type: 
  Country: None (occurrence: None)
  Receive Date: 20120129
  Receipt Date: 20111027
  Transmission Date: 20120608
  Serious: No
  Sender: FDA-Public Use
  Company Number: US-ABBOTT-11P-163-0868750-00

PATIENT
  Age: 57 Year
  Sex: Male

DRUGS (7)
  1. HUMIRA [Suspect]
     Indication: PSORIASIS
     Dates: start: 20110531, end: 20110901
  2. MULTI-VITAMINS [Concomitant]
     Indication: PRODUCT USED FOR UNKNOWN INDICATION
     Dosage: PER DAY
  3. ASPIRIN [Concomitant]
     Indication: PRODUCT USED FOR UNKNOWN INDICATION
     Dosage: REGULAR STRENGTH
  4. CREON [Concomitant]
     Indication: ENZYME SUPPLEMENTATION
     Dosage: 12,000: 1 BEFORE EACH MEAL, MAX TID
  5. LANTUS [Concomitant]
     Indication: DIABETES MELLITUS
     Dosage: PER DAY
  6. CLOBETASOL [Concomitant]
     Indication: PSORIASIS
     Dosage: APPLY TO AFFECTED AREAS
  7. CLOBETASOL [Concomitant]
     Dosage: RINSE FOR SCALP

REACTIONS (12)
  - BRONCHITIS [None]
  - YELLOW SKIN [None]
  - FATIGUE [None]
  - WOUND INFECTION STAPHYLOCOCCAL [None]
  - BLOOD PRESSURE INCREASED [None]
  - SKIN LESION [None]
  - EAR INFECTION [None]
  - BALANCE DISORDER [None]
  - ANGIOPATHY [None]
  - NODULE [None]
  - EAR PAIN [None]
  - PSORIASIS [None]
